FAERS Safety Report 8837594 (Version 2)
Quarter: 2015Q3

REPORT INFORMATION
  Report Type: Report from Study
  Country: US (occurrence: US)
  Receive Date: 20121012
  Receipt Date: 20150701
  Transmission Date: 20151125
  Serious: Yes (Hospitalization)
  Sender: FDA-Public Use
  Company Number: US-ROCHE-1120028

PATIENT
  Sex: Female

DRUGS (20)
  1. AQUAPHOR (UNITED STATES) [Concomitant]
  2. TYLENOL [Concomitant]
     Active Substance: ACETAMINOPHEN
  3. BACTROBAN [Concomitant]
     Active Substance: MUPIROCIN\MUPIROCIN CALCIUM
  4. ELIDEL [Concomitant]
     Active Substance: PIMECROLIMUS
     Dosage: CREAM
     Route: 065
  5. PEPTAMEN JUNIOR [Concomitant]
     Active Substance: DIETARY SUPPLEMENT
  6. NUTROPIN AQ PEN [Suspect]
     Active Substance: SOMATROPIN
     Indication: HYPOTHALAMO-PITUITARY DISORDER
     Route: 058
     Dates: end: 20090126
  7. ALBUTEROL. [Concomitant]
     Active Substance: ALBUTEROL
  8. BENADRYL [Concomitant]
     Active Substance: DIPHENHYDRAMINE HYDROCHLORIDE
  9. TRIAMCINOLONE [Concomitant]
     Active Substance: TRIAMCINOLONE
  10. MOTRIN [Concomitant]
     Active Substance: IBUPROFEN
  11. ENALAPRIL [Concomitant]
     Active Substance: ENALAPRIL
  12. FLOVENT [Concomitant]
     Active Substance: FLUTICASONE PROPIONATE
     Dosage: 110MCG 2 PUFFS BID
     Route: 065
  13. FLUOCINOLIDE [Concomitant]
  14. TEGRETOL [Concomitant]
     Active Substance: CARBAMAZEPINE
  15. XOPENEX [Concomitant]
     Active Substance: LEVALBUTEROL HYDROCHLORIDE
  16. SINGULAIR [Concomitant]
     Active Substance: MONTELUKAST SODIUM
  17. MIRALAX [Concomitant]
     Active Substance: POLYETHYLENE GLYCOL 3350
  18. PREVACID [Concomitant]
     Active Substance: LANSOPRAZOLE
  19. TEGRETOL [Concomitant]
     Active Substance: CARBAMAZEPINE
  20. DIASTAT (DIAZEPAM RECTAL GEL) [Concomitant]

REACTIONS (20)
  - Wheezing [Unknown]
  - Temperature intolerance [Unknown]
  - Malaise [Unknown]
  - Abdominal pain [Unknown]
  - Diarrhoea [Unknown]
  - Steatorrhoea [Unknown]
  - Alopecia [Unknown]
  - Weight decreased [Unknown]
  - Gastrointestinal disorder [Unknown]
  - Retinal oedema [Unknown]
  - Dry skin [Unknown]
  - Dysmorphism [Unknown]
  - Increased appetite [Unknown]
  - Constipation [Unknown]
  - Headache [Unknown]
  - Dizziness [Unknown]
  - Brachycephaly [Unknown]
  - Gait disturbance [Unknown]
  - Respiratory tract infection [Unknown]
  - Bronchial hyperreactivity [Unknown]
